FAERS Safety Report 14944410 (Version 1)
Quarter: 2018Q2

REPORT INFORMATION
  Report Type: Spontaneous
  Country: FR (occurrence: FR)
  Receive Date: 20180528
  Receipt Date: 20180528
  Transmission Date: 20180711
  Serious: Yes (Other)
  Sender: FDA-Public Use
  Company Number: FR-009507513-1804FRA008368

PATIENT
  Age: 88 Year
  Sex: Female

DRUGS (2)
  1. PREVISCAN (FLUINDIONE) [Interacting]
     Active Substance: FLUINDIONE
     Indication: PRODUCT USED FOR UNKNOWN INDICATION
     Dosage: UNK
  2. LIPTRUZET [Suspect]
     Active Substance: ATORVASTATIN CALCIUM\EZETIMIBE
     Indication: BLOOD CHOLESTEROL ABNORMAL
     Dosage: 1 TABLET (10/10) IN THE EVENING
     Route: 048
     Dates: start: 20180322

REACTIONS (4)
  - International normalised ratio increased [Unknown]
  - Vertigo [Unknown]
  - Drug interaction [Unknown]
  - Dizziness [Unknown]

NARRATIVE: CASE EVENT DATE: 201803
